FAERS Safety Report 25282740 (Version 1)
Quarter: 2025Q2

REPORT INFORMATION
  Report Type: Spontaneous
  Country: US (occurrence: US)
  Receive Date: 20250508
  Receipt Date: 20250508
  Transmission Date: 20250717
  Serious: Yes (Death, Other)
  Sender: GLAXOSMITHKLINE
  Company Number: US-GLAXOSMITHKLINE INC-US2025AMR056258

PATIENT

DRUGS (5)
  1. NUCALA [Suspect]
     Active Substance: MEPOLIZUMAB
     Indication: Product used for unknown indication
     Dosage: 1 ML, Q4W
     Route: 058
     Dates: start: 202407
  2. MYRBETRIQ [Concomitant]
     Active Substance: MIRABEGRON
     Indication: Product used for unknown indication
     Dosage: 50 MG, QD, (ER)
  3. PRILOSEC [Concomitant]
     Active Substance: OMEPRAZOLE MAGNESIUM
     Indication: Product used for unknown indication
  4. ANASTROZOLE [Concomitant]
     Active Substance: ANASTROZOLE
     Indication: Product used for unknown indication
  5. RESTORIL [Concomitant]
     Active Substance: TEMAZEPAM
     Indication: Product used for unknown indication

REACTIONS (1)
  - Death [Fatal]
